FAERS Safety Report 11087235 (Version 2)
Quarter: 2015Q2

REPORT INFORMATION
  Report Type: Spontaneous
  Country: DE (occurrence: None)
  Receive Date: 20150430
  Receipt Date: 20150506
  Transmission Date: 20150821
  Serious: Yes (Hospitalization)
  Sender: FDA-Public Use
  Company Number: DE-DEXPHARM-20150286

PATIENT
  Age: 90 Year
  Sex: Male

DRUGS (1)
  1. SOLARAZE [Suspect]
     Active Substance: DICLOFENAC SODIUM
     Route: 061

REACTIONS (16)
  - Hypertension [None]
  - Purulent discharge [None]
  - Actinic elastosis [None]
  - Pseudomonas test positive [None]
  - Erythema [None]
  - Wound haemorrhage [None]
  - Cardiac disorder [None]
  - Skin erosion [None]
  - Hyperkeratosis [None]
  - Scab [None]
  - Inflammation [None]
  - Drug ineffective [None]
  - Hyperlipidaemia [None]
  - Renal failure [None]
  - Impaired healing [None]
  - Actinic keratosis [None]
